FAERS Safety Report 6211337-8 (Version None)
Quarter: 2009Q2

REPORT INFORMATION
  Report Type: 
  Country: None (occurrence: None)
  Receive Date: 20090528
  Receipt Date: 20090520
  Transmission Date: 20091009
  Serious: Yes (Life-Threatening)
  Sender: FDA-Public Use
  Company Number: 2009-197129-NL

PATIENT
  Age: 41 Year
  Sex: Female

DRUGS (3)
  1. ROCURONIUM BROMIDE [Suspect]
     Indication: MUSCLE RELAXANT THERAPY
     Dosage: 40 MG ONCE INTRAVENOUS (NOS)
     Route: 042
     Dates: start: 20090518, end: 20090518
  2. FENTANYL CITRATE [Concomitant]
  3. PROPOFOL [Concomitant]

REACTIONS (4)
  - BLOOD PRESSURE IMMEASURABLE [None]
  - BRADYCARDIA [None]
  - CARBON DIOXIDE DECREASED [None]
  - OXYGEN SATURATION DECREASED [None]
